FAERS Safety Report 8397621-0 (Version None)
Quarter: 2012Q2

REPORT INFORMATION
  Report Type: 
  Country: None (occurrence: None)
  Receive Date: 20120529
  Receipt Date: 20120529
  Transmission Date: 20120825
  Serious: Yes (Other)
  Sender: FDA-Public Use
  Company Number: None

PATIENT
  Sex: Male
  Weight: 13.6079 kg

DRUGS (2)
  1. AZITHROMYCIN [Suspect]
     Dosage: 7ML ONCE
     Dates: start: 20120525, end: 20120526
  2. AZITHROMYCIN [Suspect]

REACTIONS (2)
  - RASH [None]
  - BLISTER [None]
